FAERS Safety Report 5418759-3 (Version None)
Quarter: 2007Q3

REPORT INFORMATION
  Report Type: 
  Country: None (occurrence: None)
  Receive Date: 20070817
  Receipt Date: 20070807
  Transmission Date: 20080115
  Serious: Yes (Hospitalization)
  Sender: FDA-Public Use
  Company Number: FR-PFIZER INC-2007065422

PATIENT
  Age: 62 Year
  Sex: Male

DRUGS (9)
  1. CEFPODOXIME PROXETIL [Suspect]
     Route: 048
     Dates: start: 20070616, end: 20070616
  2. PLAVIX [Suspect]
     Indication: MYOCARDIAL INFARCTION
     Route: 048
     Dates: start: 20070529, end: 20070620
  3. ASPEGIC 325 [Concomitant]
  4. TAHOR [Concomitant]
  5. COVERSYL [Concomitant]
  6. SECTRAL [Concomitant]
  7. VASTAREL [Concomitant]
  8. OMACOR [Concomitant]
  9. ASPIRIN [Concomitant]

REACTIONS (4)
  - AGRANULOCYTOSIS [None]
  - NEUTROPENIA [None]
  - PYREXIA [None]
  - TONSILLITIS [None]
